FAERS Safety Report 8348419-0 (Version None)
Quarter: 2012Q2

REPORT INFORMATION
  Report Type: 
  Country: None (occurrence: None)
  Receive Date: 20120509
  Receipt Date: 20120424
  Transmission Date: 20120825
  Serious: Yes (Other)
  Sender: FDA-Public Use
  Company Number: CHPA2012US009865

PATIENT
  Age: 62 Year
  Sex: Female

DRUGS (1)
  1. NICOTINE [Suspect]
     Indication: SMOKING CESSATION THERAPY
     Dosage: 14 MG, QD
     Route: 062
     Dates: end: 20120420

REACTIONS (4)
  - NASOPHARYNGITIS [None]
  - INFLUENZA [None]
  - PNEUMONIA [None]
  - UNDERDOSE [None]
